FAERS Safety Report 8393864-0 (Version None)
Quarter: 2012Q2

REPORT INFORMATION
  Report Type: 
  Country: None (occurrence: None)
  Receive Date: 20120530
  Receipt Date: 20120524
  Transmission Date: 20120825
  Serious: Yes (Other)
  Sender: FDA-Public Use
  Company Number: US-AMGEN-USASP2012032955

PATIENT

DRUGS (1)
  1. ENBREL [Suspect]
     Indication: RHEUMATOID ARTHRITIS
     Route: 064
     Dates: start: 20080310

REACTIONS (6)
  - WEIGHT DECREASE NEONATAL [None]
  - POOR SUCKING REFLEX [None]
  - NEONATAL ASPIRATION [None]
  - FEEDING DISORDER NEONATAL [None]
  - SMALL FOR DATES BABY [None]
  - VOMITING NEONATAL [None]
